FAERS Safety Report 6247984-7 (Version None)
Quarter: 2009Q2

REPORT INFORMATION
  Report Type: 
  Country: None (occurrence: None)
  Receive Date: 20090626
  Receipt Date: 20090617
  Transmission Date: 20091009
  Serious: Yes (Other)
  Sender: FDA-Public Use
  Company Number: ES-GILEAD-2009-0022457

PATIENT
  Age: 44 Year
  Sex: Male

DRUGS (7)
  1. ATRIPLA [Suspect]
     Indication: HIV INFECTION
     Dates: start: 20080506
  2. KALETRA [Suspect]
     Dates: start: 20020601
  3. COMBIVIR [Concomitant]
     Dates: start: 20010501
  4. ZIDOVUDINE [Concomitant]
     Dates: start: 19960408
  5. DIDANOSINE [Concomitant]
     Dates: start: 19960408
  6. LAMIVUDINE [Concomitant]
     Dates: start: 20010501
  7. INDINIVIR SULFATE [Concomitant]
     Dates: start: 20010501

REACTIONS (1)
  - OSTEONECROSIS [None]
